FAERS Safety Report 4740712-3 (Version None)
Quarter: 2005Q3

REPORT INFORMATION
  Report Type: 
  Country: None (occurrence: None)
  Receive Date: 20050810
  Receipt Date: 20050808
  Transmission Date: 20060218
  Serious: Yes (Other)
  Sender: FDA-Public Use
  Company Number: DE-GLAXOSMITHKLINE-D0047251A

PATIENT
  Age: 47 Year
  Sex: Male
  Weight: 101 kg

DRUGS (2)
  1. ELMENDOS [Suspect]
     Indication: BIPOLAR DISORDER
     Dosage: 100MG TWICE PER DAY
     Route: 048
  2. MIRTAZAPINE [Concomitant]
     Dosage: 45U AT NIGHT
     Route: 065

REACTIONS (2)
  - FATIGUE [None]
  - SLEEP ATTACKS [None]
